FAERS Safety Report 4300494-6 (Version None)
Quarter: 2004Q1

REPORT INFORMATION
  Report Type: 
  Country: None (occurrence: None)
  Receive Date: 20040217
  Receipt Date: 20040203
  Transmission Date: 20041129
  Serious: Yes (Hospitalization, Other)
  Sender: FDA-Public Use
  Company Number: S04-341-067

PATIENT
  Age: 47 Year
  Sex: Female
  Weight: 65 kg

DRUGS (1)
  1. VELCADE [Suspect]
     Indication: MULTIPLE MYELOMA
     Dosage: 1.3 MG BIW : INTRAVENOUS BOLUS
     Route: 040
     Dates: start: 20030527, end: 20040106

REACTIONS (3)
  - COLOUR BLINDNESS [None]
  - VISUAL ACUITY REDUCED [None]
  - VISUAL DISTURBANCE [None]
